FAERS Safety Report 13018326 (Version 1)
Quarter: 2016Q4

REPORT INFORMATION
  Report Type: Spontaneous
  Country: US (occurrence: US)
  Receive Date: 20161212
  Receipt Date: 20161212
  Transmission Date: 20170207
  Serious: No
  Sender: FDA-Public Use
  Company Number: US-MISSION PHARMACAL COMPANY-1060691

PATIENT
  Age: 62 Year
  Sex: Female

DRUGS (1)
  1. TINIDAZOLE. [Suspect]
     Active Substance: TINIDAZOLE
     Indication: CYSTINURIA
     Route: 065
     Dates: start: 20151006

REACTIONS (1)
  - Drug dose omission [Unknown]
